FAERS Safety Report 11841772 (Version 1)
Quarter: 2015Q4

REPORT INFORMATION
  Report Type: Spontaneous
  Country: US (occurrence: US)
  Receive Date: 20151216
  Receipt Date: 20151216
  Transmission Date: 20160305
  Serious: No
  Sender: FDA-Public Use
  Company Number: US-RB-071133-14

PATIENT
  Age: 5 Year
  Sex: Male

DRUGS (1)
  1. DELSYM [Suspect]
     Active Substance: DEXTROMETHORPHAN
     Indication: PRODUCT USED FOR UNKNOWN INDICATION
     Dosage: 2.50ML. PATIENT WAS GIVEN 2.5ML BY MOUTH, ONLY 1 TIME ON 25-NOV-2014.,QD
     Route: 048
     Dates: start: 20141125

REACTIONS (2)
  - Expired product administered [Recovered/Resolved]
  - Cough [Recovered/Resolved]

NARRATIVE: CASE EVENT DATE: 20141125
